FAERS Safety Report 17762504 (Version 1)
Quarter: 2020Q2

REPORT INFORMATION
  Report Type: Report from Study
  Country: CA (occurrence: CA)
  Receive Date: 20200508
  Receipt Date: 20200508
  Transmission Date: 20200714
  Serious: Yes (Hospitalization, Other)
  Sender: FDA-Public Use
  Company Number: PHHY2018CA024420

PATIENT
  Age: 66 Year
  Sex: Female

DRUGS (4)
  1. SANDOSTATIN LAR DEPOT [Suspect]
     Active Substance: OCTREOTIDE ACETATE
     Indication: CARCINOID TUMOUR
     Dosage: 30 MG, QMO (EVERY Q4 WEEKS)
     Route: 030
     Dates: start: 20080117
  2. SANDOSTATIN LAR DEPOT [Suspect]
     Active Substance: OCTREOTIDE ACETATE
     Indication: NEUROENDOCRINE TUMOUR
     Dosage: 30 MG, QMO (EVERY Q4 WEEKS)
     Route: 030
  3. LIDOCAINE. [Concomitant]
     Active Substance: LIDOCAINE
     Indication: NECK PAIN
     Route: 042
  4. SANDOSTATIN LAR DEPOT [Suspect]
     Active Substance: OCTREOTIDE ACETATE
     Dosage: 30 MG, QMO (EVERY Q4 WEEKS)
     Route: 030
     Dates: start: 2013

REACTIONS (15)
  - Body temperature decreased [Unknown]
  - Nausea [Recovering/Resolving]
  - Hypotension [Unknown]
  - Metastases to pelvis [Unknown]
  - Malaise [Unknown]
  - Asthenia [Unknown]
  - Pain [Unknown]
  - Fatigue [Unknown]
  - Tachycardia [Unknown]
  - Neck pain [Unknown]
  - Arthralgia [Unknown]
  - Dizziness [Recovering/Resolving]
  - Metastases to neck [Unknown]
  - Condition aggravated [Unknown]
  - Swelling [Recovering/Resolving]

NARRATIVE: CASE EVENT DATE: 2018
